FAERS Safety Report 5428096-9 (Version None)
Quarter: 2007Q3

REPORT INFORMATION
  Report Type: 
  Country: None (occurrence: None)
  Receive Date: 20070731
  Receipt Date: 20070517
  Transmission Date: 20080115
  Serious: No
  Sender: FDA-Public Use
  Company Number: US200705005145

PATIENT
  Age: 64 Year
  Sex: Female

DRUGS (12)
  1. BYETTA [Suspect]
     Indication: TYPE 2 DIABETES MELLITUS
     Dosage: 5 UG, 2/D, SUBCUTANEOUS; 10 UG, 2/D, SUBCUTANEOUS
     Route: 058
     Dates: start: 20060101, end: 20060101
  2. BYETTA [Suspect]
     Indication: TYPE 2 DIABETES MELLITUS
     Dosage: 5 UG, 2/D, SUBCUTANEOUS; 10 UG, 2/D, SUBCUTANEOUS
     Route: 058
     Dates: start: 20060101
  3. EXENATIDE [Concomitant]
  4. WELLBUTRIN [Concomitant]
  5. LEXAPRO [Concomitant]
  6. FOSAMAX [Concomitant]
  7. NORVASC [Concomitant]
  8. CALCIUM D [Concomitant]
  9. B COMPLEX (NICOTINAMIDE, PYRIDOXINE HYDROCHLORIDE, RIBOFLAVIN, THIAMIN [Concomitant]
  10. COENZYME Q10 [Concomitant]
  11. OMEGA 3 (FISH OIL) [Concomitant]
  12. LIPITOR [Concomitant]

REACTIONS (5)
  - ABDOMINAL PAIN [None]
  - CONSTIPATION [None]
  - INTESTINAL POLYP [None]
  - LIVER FUNCTION TEST ABNORMAL [None]
  - WEIGHT DECREASED [None]
